FAERS Safety Report 8760149 (Version 4)
Quarter: 2012Q4

REPORT INFORMATION
  Report Type: Report from Study
  Country: DK (occurrence: DK)
  Receive Date: 20120829
  Receipt Date: 20121012
  Transmission Date: 20130627
  Serious: Yes (Hospitalization)
  Sender: FDA-Public Use
  Company Number: DK-ROCHE-1103413

PATIENT
  Age: 74 Year
  Sex: Female
  Weight: 65.7 kg

DRUGS (11)
  1. HERCEPTIN [Suspect]
     Indication: BREAST CANCER
     Dosage: Date of last dose prior to SAE: 31/Jul/2012
     Route: 042
     Dates: start: 20120704
  2. HERCEPTIN [Suspect]
     Route: 065
     Dates: start: 20120820
  3. DOCETAXEL [Suspect]
     Indication: BREAST CANCER
     Dosage: Date of last dose prior to SAE: 31/Jul/2012
     Route: 042
     Dates: start: 20120704
  4. DOCETAXEL [Suspect]
     Dosage: dose reduced
     Route: 042
     Dates: start: 20120820
  5. METOPROLOL [Concomitant]
     Route: 065
     Dates: start: 1982
  6. CENTYL MED KALIUMKLORID [Concomitant]
     Route: 065
     Dates: start: 1982
  7. PINEX [Concomitant]
     Route: 065
     Dates: start: 20120719
  8. BENZYDAMINE [Concomitant]
     Route: 065
     Dates: start: 20120814
  9. PROCTOSEDYL (DENMARK) [Concomitant]
     Route: 065
     Dates: start: 201208
  10. PERTUZUMAB [Suspect]
     Indication: BREAST CANCER
     Dosage: Date of last dose prior to SAE: 31/Jul/2012
     Route: 042
     Dates: start: 20120704
  11. PERTUZUMAB [Suspect]
     Route: 065
     Dates: start: 20120821

REACTIONS (2)
  - Hypomagnesaemia [Recovered/Resolved]
  - Febrile neutropenia [Recovered/Resolved]
